FAERS Safety Report 13947886 (Version 1)
Quarter: 2017Q3

REPORT INFORMATION
  Report Type: Spontaneous
  Country: IT (occurrence: IT)
  Receive Date: 20170908
  Receipt Date: 20170908
  Transmission Date: 20171128
  Serious: Yes (Life-Threatening, Other)
  Sender: FDA-Public Use
  Company Number: IT-SUN PHARMACEUTICAL INDUSTRIES LTD-2017R1-149337

PATIENT
  Age: 65 Year
  Sex: Female

DRUGS (1)
  1. DOXORUBICIN [Suspect]
     Active Substance: DOXORUBICIN
     Indication: KAPOSI^S SARCOMA
     Dosage: LIPOSOMAL DOXORUBICIN
     Route: 065
     Dates: start: 2010

REACTIONS (1)
  - Respiratory disorder [Unknown]

NARRATIVE: CASE EVENT DATE: 2010
